FAERS Safety Report 25065953 (Version 1)
Quarter: 2025Q1

REPORT INFORMATION
  Report Type: Spontaneous
  Country: PL (occurrence: PL)
  Receive Date: 20250312
  Receipt Date: 20250312
  Transmission Date: 20250409
  Serious: Yes (Congenital Anomaly)
  Sender: NOVO NORDISK
  Company Number: PL-NOVOPROD-1381683

PATIENT
  Sex: Male
  Weight: 3.88 kg

DRUGS (3)
  1. NOVORAPID [Suspect]
     Active Substance: INSULIN ASPART
     Indication: Gestational diabetes
     Route: 015
  2. INSULIN DETEMIR [Suspect]
     Active Substance: INSULIN DETEMIR
     Indication: Gestational diabetes
     Dosage: 16 MG, QD (NIGHT)
     Route: 015
  3. BETAMETHASONE [Concomitant]
     Active Substance: BETAMETHASONE
     Indication: Product used for unknown indication
     Route: 015

REACTIONS (2)
  - Periventricular leukomalacia [Unknown]
  - Foetal exposure during pregnancy [Recovered/Resolved]
